FAERS Safety Report 11847876 (Version 2)
Quarter: 2015Q4

REPORT INFORMATION
  Report Type: Report from Study
  Country: DE (occurrence: DE)
  Receive Date: 20151217
  Receipt Date: 20151217
  Transmission Date: 20160305
  Serious: Yes (Death, Hospitalization)
  Sender: FDA-Public Use
  Company Number: DE-ABBVIE-15P-062-1518489-00

PATIENT
  Age: 79 Year
  Sex: Female

DRUGS (1)
  1. DUODOPA [Suspect]
     Active Substance: CARBIDOPA\LEVODOPA
     Indication: PARKINSON^S DISEASE
     Dosage: MD: 9.5 ML, CRD: 3.5 ML/H, ED: 1 ML
     Route: 050
     Dates: start: 20151102

REACTIONS (2)
  - Death [Fatal]
  - Resuscitation [Not Recovered/Not Resolved]

NARRATIVE: CASE EVENT DATE: 20151210
